FAERS Safety Report 4458584-3 (Version None)
Quarter: 2004Q3

REPORT INFORMATION
  Report Type: 
  Country: None (occurrence: None)
  Receive Date: 20040917
  Receipt Date: 20030903
  Transmission Date: 20050211
  Serious: Yes (Hospitalization)
  Sender: FDA-Public Use
  Company Number: US-JNJFOC-20030901313

PATIENT
  Age: 45 Year
  Sex: Female
  Weight: 58.0604 kg

DRUGS (5)
  1. TOPAMAX [Suspect]
     Indication: BACK PAIN
     Dosage: 100 MG, 2 IN 1 DAY, ORAL
     Route: 048
     Dates: end: 20030801
  2. TOPAMAX [Suspect]
     Indication: MIGRAINE
     Dosage: 100 MG, 2 IN 1 DAY, ORAL
     Route: 048
     Dates: end: 20030801
  3. SOMA [Concomitant]
  4. FROVA (ALL OTHER THERAPEUTIC PRODUCTS) [Concomitant]
  5. METHERGINE [Concomitant]

REACTIONS (1)
  - GLOBAL AMNESIA [None]
